FAERS Safety Report 4937795-4 (Version None)
Quarter: 2006Q1

REPORT INFORMATION
  Report Type: 
  Country: None (occurrence: None)
  Receive Date: 20060308
  Receipt Date: 20060308
  Transmission Date: 20060701
  Serious: Yes (Other)
  Sender: FDA-Public Use
  Company Number: None

PATIENT
  Age: 6 Month
  Sex: Male
  Weight: 9 kg

DRUGS (1)
  1. CAMPATH [Suspect]
     Dosage: 3 MG, QD, ONE DAY, IV, 20 MG, QD, TWO DAYS, IV
     Route: 042
     Dates: start: 20060207, end: 20060209

REACTIONS (12)
  - BLISTER [None]
  - DRUG HYPERSENSITIVITY [None]
  - ECCHYMOSIS [None]
  - ERYTHEMA [None]
  - GENITAL HAEMORRHAGE [None]
  - GENITAL TRACT INFLAMMATION [None]
  - INFUSION RELATED REACTION [None]
  - OEDEMA GENITAL [None]
  - OEDEMA PERIPHERAL [None]
  - PAIN IN EXTREMITY [None]
  - SKIN INFLAMMATION [None]
  - URTICARIA [None]
